FAERS Safety Report 25025233 (Version 1)
Quarter: 2025Q1

REPORT INFORMATION
  Report Type: Spontaneous
  Country: PL (occurrence: PL)
  Receive Date: 20250228
  Receipt Date: 20250228
  Transmission Date: 20250409
  Serious: Yes (Other)
  Sender: REGENERON
  Company Number: PL-BAYER-2025A024315

PATIENT
  Age: 74 Year
  Sex: Female

DRUGS (2)
  1. EYLEA HD [Suspect]
     Active Substance: AFLIBERCEPT
     Indication: Neovascular age-related macular degeneration
     Dates: start: 20250120, end: 20250120
  2. EYLEA HD [Suspect]
     Active Substance: AFLIBERCEPT
     Indication: Retinal vein occlusion
     Dates: start: 20250128, end: 20250128

REACTIONS (8)
  - Corneal deposits [Unknown]
  - Anterior chamber flare [Unknown]
  - Corneal deposits [Recovered/Resolved]
  - Visual impairment [Recovering/Resolving]
  - Visual acuity reduced [Recovering/Resolving]
  - Visual acuity reduced [Unknown]
  - Anterior chamber flare [Recovered/Resolved]
  - Vitreal cells [Unknown]

NARRATIVE: CASE EVENT DATE: 20250123
